FAERS Safety Report 8835811 (Version 1)
Quarter: 2012Q4

REPORT INFORMATION
  Report Type: 
  Country: NL (occurrence: NL)
  Receive Date: 20121011
  Receipt Date: 20121011
  Transmission Date: 20130627
  Serious: Yes (Hospitalization)
  Sender: FDA-Public Use
  Company Number: NL-PFIZER INC-2012247364

PATIENT
  Age: 42 Year
  Sex: Male
  Weight: 144 kg

DRUGS (8)
  1. GENOTROPIN [Suspect]
     Indication: GROWTH HORMONE DEFICIENCY
     Dosage: 0.5 mg, 1x/day, 7injections/week
     Route: 058
     Dates: start: 20001002
  2. DESMOPRESSIN [Concomitant]
     Indication: BLOOD ANTIDIURETIC HORMONE DECREASED
     Dosage: UNK
     Dates: start: 19901001, end: 20070510
  3. LEVOTHYROXINE [Concomitant]
     Indication: BLOOD THYROID STIMULATING HORMONE DECREASED
     Dosage: UNK
     Dates: start: 19901001
  4. SELEKTINE [Concomitant]
     Dosage: UNK
     Dates: start: 19991116
  5. ANDROGEL [Concomitant]
     Indication: BLOOD LUTEINISING HORMONE DECREASED
     Dosage: UNK
     Dates: start: 20041004
  6. ANDROGEL [Concomitant]
     Indication: BLOOD FOLLICLE STIMULATING HORMONE DECREASED
  7. ANDROGEL [Concomitant]
     Indication: HYPOGONADISM MALE
  8. DESMOPRESSIN INTRANASAL [Concomitant]
     Indication: BLOOD ANTIDIURETIC HORMONE DECREASED
     Dosage: UNK
     Route: 045
     Dates: start: 19901001

REACTIONS (1)
  - Epilepsy [Unknown]
